FAERS Safety Report 4474246-0 (Version None)
Quarter: 2004Q4

REPORT INFORMATION
  Report Type: 
  Country: None (occurrence: None)
  Receive Date: 20041012
  Receipt Date: 20040301
  Transmission Date: 20050328
  Serious: Yes (Death, Hospitalization)
  Sender: FDA-Public Use
  Company Number: 6007344

PATIENT
  Sex: Male

DRUGS (5)
  1. BISOPROLOL FUMARATE [Suspect]
     Indication: CARDIAC FAILURE CONGESTIVE
     Dosage: 10 MG (10 MG, 1 IN 1 D)
     Route: 048
     Dates: start: 20030730
  2. ENALAPRIL MALEATE [Suspect]
     Indication: CARDIAC FAILURE CONGESTIVE
     Dosage: 5 MG (2.5 MG, 2 IN 1 D)
     Route: 048
     Dates: start: 20040202
  3. THEOPHYLLINE [Concomitant]
  4. ASPIRIN [Concomitant]
  5. POTASSIUM CHLORIDE [Concomitant]

REACTIONS (8)
  - BRONCHITIS ACUTE [None]
  - BRONCHOPNEUMONIA [None]
  - BRONCHOSPASM [None]
  - CARDIAC FAILURE [None]
  - CONDITION AGGRAVATED [None]
  - PNEUMOCONIOSIS [None]
  - PULMONARY OEDEMA [None]
  - RESPIRATORY FAILURE [None]
